FAERS Safety Report 22243764 (Version 1)
Quarter: 2023Q2

REPORT INFORMATION
  Report Type: Spontaneous
  Country: US (occurrence: None)
  Receive Date: 20230424
  Receipt Date: 20230424
  Transmission Date: 20230722
  Serious: Yes (Other)
  Sender: FDA-Public Use
  Company Number: US-ROCHE-3336313

PATIENT
  Age: 15 Year
  Sex: Male

DRUGS (1)
  1. HEMLIBRA [Suspect]
     Active Substance: EMICIZUMAB-KXWH
     Indication: Factor VIII deficiency
     Dosage: STRENGTH 105 MG/0.7 ML?LAST DOSE WAS SCHEDULED FOR 11/APR/2023
     Route: 058
     Dates: start: 202303

REACTIONS (1)
  - Muscle haemorrhage [Unknown]

NARRATIVE: CASE EVENT DATE: 20230418
